FAERS Safety Report 4842247-6 (Version None)
Quarter: 2005Q4

REPORT INFORMATION
  Report Type: 
  Country: None (occurrence: None)
  Receive Date: 20051129
  Receipt Date: 20051114
  Transmission Date: 20060501
  Serious: Yes (Hospitalization)
  Sender: FDA-Public Use
  Company Number: 2005PV004348

PATIENT
  Sex: Female

DRUGS (2)
  1. SYMLIN [Suspect]
     Indication: DIABETES MELLITUS INSULIN-DEPENDENT
     Dosage: SC
     Route: 058
     Dates: start: 20051001
  2. INSULIN [Concomitant]

REACTIONS (4)
  - APALLIC SYNDROME [None]
  - CONVULSION [None]
  - DEVICE FAILURE [None]
  - HYPOGLYCAEMIA [None]
